FAERS Safety Report 19106150 (Version 1)
Quarter: 2021Q2

REPORT INFORMATION
  Report Type: Spontaneous
  Country: CN (occurrence: CN)
  Receive Date: 20210407
  Receipt Date: 20210407
  Transmission Date: 20210717
  Serious: Yes (Hospitalization, Other)
  Sender: FDA-Public Use
  Company Number: CN-GLAXOSMITHKLINE-CNCH2021APC016809

PATIENT
  Age: 43 Year
  Sex: Male
  Weight: 69 kg

DRUGS (3)
  1. FENBID (IBUPROFEN) [Suspect]
     Active Substance: IBUPROFEN
     Indication: ABDOMINAL PAIN UPPER
     Dosage: 0.3 G, QD
     Route: 048
     Dates: start: 20210215, end: 20210322
  2. FENBID (IBUPROFEN) [Suspect]
     Active Substance: IBUPROFEN
     Indication: SPINAL OSTEOARTHRITIS
  3. FENBID (IBUPROFEN) [Suspect]
     Active Substance: IBUPROFEN
     Indication: PAIN PROPHYLAXIS

REACTIONS (13)
  - Abdominal discomfort [Recovered/Resolved]
  - Asthenia [Not Recovered/Not Resolved]
  - Abdominal pain upper [Not Recovered/Not Resolved]
  - Gastrointestinal haemorrhage [Recovered/Resolved]
  - Faeces discoloured [Recovered/Resolved]
  - Melaena [Recovered/Resolved]
  - Decreased appetite [Recovered/Resolved]
  - Dry mouth [Not Recovered/Not Resolved]
  - Dizziness [Not Recovered/Not Resolved]
  - Haematemesis [Recovered/Resolved]
  - Chronic gastritis [Recovered/Resolved]
  - Condition aggravated [Recovered/Resolved]
  - Vomiting [Recovered/Resolved]

NARRATIVE: CASE EVENT DATE: 20210320
